FAERS Safety Report 20610254 (Version 2)
Quarter: 2022Q2

REPORT INFORMATION
  Report Type: Spontaneous
  Country: US (occurrence: US)
  Receive Date: 20220318
  Receipt Date: 20220611
  Transmission Date: 20220721
  Serious: No
  Sender: FDA-Public Use
  Company Number: US-drreddys-SPO/USA/22/0147643

PATIENT
  Age: 60 Year
  Sex: Female
  Weight: 103.5 kg

DRUGS (1)
  1. OMEPRAZOLE [Suspect]
     Active Substance: OMEPRAZOLE
     Indication: Dyspepsia
     Dosage: 10 YEARS AGO

REACTIONS (2)
  - Product container seal issue [Unknown]
  - Product use issue [Unknown]
